FAERS Safety Report 16383177 (Version 1)
Quarter: 2019Q3

REPORT INFORMATION
  Report Type: Spontaneous
  Country: US (occurrence: US)
  Receive Date: 20190528
  Receipt Date: 20190528
  Transmission Date: 20191004
  Serious: Yes (Life-Threatening, Hospitalization, Disabling, Other)
  Sender: FDA-Public Use
  Company Number: None

PATIENT
  Age: 43 Year
  Sex: Male
  Weight: 69.75 kg

DRUGS (16)
  1. HALDOL [Concomitant]
     Active Substance: HALOPERIDOL
  2. RISPERDAL [Concomitant]
     Active Substance: RISPERIDONE
  3. PROZAC [Concomitant]
     Active Substance: FLUOXETINE HYDROCHLORIDE
  4. LITHIUM. [Concomitant]
     Active Substance: LITHIUM
  5. DATEM [Concomitant]
  6. DEPAKOTE [Concomitant]
     Active Substance: DIVALPROEX SODIUM
  7. EFFEXOR [Concomitant]
     Active Substance: VENLAFAXINE HYDROCHLORIDE
  8. PROLIXIN [Concomitant]
     Active Substance: FLUPHENAZINE HYDROCHLORIDE
  9. FAZACLO [Concomitant]
     Active Substance: CLOZAPINE
     Dates: start: 20090503, end: 20190522
  10. COLACE LOL [Concomitant]
  11. GEODON [Concomitant]
     Active Substance: ZIPRASIDONE HYDROCHLORIDE\ZIPRASIDONE MESYLATE
  12. ZYPREXA [Concomitant]
     Active Substance: OLANZAPINE
  13. CRESTOR [Concomitant]
     Active Substance: ROSUVASTATIN CALCIUM
  14. MELLARIL [Suspect]
     Active Substance: THIORIDAZINE HYDROCHLORIDE
     Route: 048
  15. SEROQUEL [Concomitant]
     Active Substance: QUETIAPINE FUMARATE
  16. ADAVAN (WHEN [ILLEGALLY] MIXED WITH OTHER TYPICAL ANTIPSYCHOTICS) [Concomitant]

REACTIONS (3)
  - Treatment noncompliance [None]
  - Drug hypersensitivity [None]
  - Adverse drug reaction [None]
